FAERS Safety Report 15227745 (Version 1)
Quarter: 2018Q3

REPORT INFORMATION
  Report Type: Spontaneous
  Country: GB (occurrence: GB)
  Receive Date: 20180801
  Receipt Date: 20180801
  Transmission Date: 20181010
  Serious: Yes (Other)
  Sender: FDA-Public Use
  Company Number: GB-TEVA-2018-GB-932901

PATIENT
  Age: 54 Year
  Sex: Female
  Weight: 72.57 kg

DRUGS (1)
  1. NITROFURANTOIN. [Suspect]
     Active Substance: NITROFURANTOIN
     Indication: URINARY TRACT INFECTION
     Dosage: 200 MILLIGRAM DAILY;
     Route: 048
     Dates: start: 20180626, end: 20180630

REACTIONS (13)
  - Abdominal distension [Recovering/Resolving]
  - Faeces pale [Unknown]
  - Yellow skin [Unknown]
  - Arthralgia [Recovering/Resolving]
  - Headache [Recovering/Resolving]
  - Decreased appetite [Unknown]
  - Hypersomnia [Unknown]
  - Nausea [Recovering/Resolving]
  - Chills [Recovering/Resolving]
  - Chromaturia [Unknown]
  - Diarrhoea [Recovering/Resolving]
  - Fatigue [Recovering/Resolving]
  - Dysgeusia [Unknown]

NARRATIVE: CASE EVENT DATE: 20180627
